FAERS Safety Report 7077439-1 (Version None)
Quarter: 2010Q4

REPORT INFORMATION
  Report Type: 
  Country: None (occurrence: None)
  Receive Date: 20101101
  Receipt Date: 20101022
  Transmission Date: 20110411
  Serious: Yes (Hospitalization, Other)
  Sender: FDA-Public Use
  Company Number: JP-MERCK-1008USA01194

PATIENT
  Age: 27 Year
  Sex: Female
  Weight: 66 kg

DRUGS (5)
  1. PEPCID [Suspect]
     Indication: GASTRITIS
     Route: 030
     Dates: start: 20100601
  2. PEPCID [Suspect]
     Route: 041
     Dates: start: 20100807, end: 20100807
  3. PEPCID [Suspect]
     Route: 041
     Dates: start: 20100809, end: 20100809
  4. PEPCID [Suspect]
     Route: 041
     Dates: start: 20100807, end: 20100807
  5. SOLDEM 3 [Concomitant]
     Indication: GASTRITIS
     Route: 041
     Dates: start: 20100807, end: 20100807

REACTIONS (3)
  - ANAPHYLACTIC SHOCK [None]
  - DRUG ADMINISTRATION ERROR [None]
  - DRUG ERUPTION [None]
